FAERS Safety Report 16499110 (Version 1)
Quarter: 2019Q3

REPORT INFORMATION
  Report Type: Spontaneous
  Country: IT (occurrence: IT)
  Receive Date: 20190701
  Receipt Date: 20190701
  Transmission Date: 20191004
  Serious: Yes (Life-Threatening, Hospitalization)
  Sender: FDA-Public Use
  Company Number: IT-ROCHE-2341797

PATIENT
  Age: 46 Year
  Sex: Male

DRUGS (2)
  1. OXALIPLATIN. [Concomitant]
     Active Substance: OXALIPLATIN
     Indication: ADENOCARCINOMA OF COLON
     Dosage: DOSE: 130 MG/MQ DAY 1
     Route: 065
  2. CAPECITABINE. [Suspect]
     Active Substance: CAPECITABINE
     Indication: ADENOCARCINOMA OF COLON
     Dosage: FOR 14 DAYS, EVERY 3 WEEKS
     Route: 048

REACTIONS (8)
  - Thrombocytopenia [Recovered/Resolved]
  - Hepatic failure [Recovered/Resolved]
  - Hypoalbuminaemia [Recovered/Resolved]
  - Neutropenia [Recovered/Resolved]
  - Hyperbilirubinaemia [Recovered/Resolved]
  - Pharyngeal inflammation [Recovered/Resolved]
  - Leukopenia [Recovered/Resolved]
  - Diarrhoea [Recovered/Resolved]

NARRATIVE: CASE EVENT DATE: 2017
